FAERS Safety Report 23277345 (Version 1)
Quarter: 2023Q4

REPORT INFORMATION
  Report Type: Spontaneous
  Country: US (occurrence: None)
  Receive Date: 20231208
  Receipt Date: 20231208
  Transmission Date: 20240109
  Serious: Yes (Hospitalization)
  Sender: FDA-Public Use
  Company Number: None

PATIENT
  Age: 51 Year
  Sex: Female
  Weight: 115 kg

DRUGS (1)
  1. CISPLATIN [Suspect]
     Active Substance: CISPLATIN
     Dates: end: 20231127

REACTIONS (11)
  - Respiratory failure [None]
  - Secretion discharge [None]
  - Urinary tract infection [None]
  - Abdominal pain [None]
  - Chest pain [None]
  - Pain in extremity [None]
  - Oropharyngeal pain [None]
  - Cough [None]
  - Nausea [None]
  - Constipation [None]
  - Urine output decreased [None]

NARRATIVE: CASE EVENT DATE: 20231202
